FAERS Safety Report 13682291 (Version 2)
Quarter: 2017Q2

REPORT INFORMATION
  Report Type: Report from Study
  Country: US (occurrence: US)
  Receive Date: 20170623
  Receipt Date: 20170629
  Transmission Date: 20170830
  Serious: Yes (Death)
  Sender: FDA-Public Use
  Company Number: US-SA-2017SA113666

PATIENT
  Age: 84 Year
  Sex: Male

DRUGS (1)
  1. RENVELA [Suspect]
     Active Substance: SEVELAMER CARBONATE
     Route: 048
     Dates: start: 201309, end: 20170526

REACTIONS (2)
  - Cardiac disorder [Unknown]
  - Death [Fatal]

NARRATIVE: CASE EVENT DATE: 20170609
